FAERS Safety Report 15965665 (Version 1)
Quarter: 2019Q1

REPORT INFORMATION
  Report Type: Spontaneous
  Country: NL (occurrence: NL)
  Receive Date: 20190215
  Receipt Date: 20190215
  Transmission Date: 20190418
  Serious: Yes (Life-Threatening, Other)
  Sender: FDA-Public Use
  Company Number: NL-AUROBINDO-AUR-APL-2019-007876

PATIENT

DRUGS (10)
  1. ALENDRONIC ACID [Concomitant]
     Active Substance: ALENDRONIC ACID
     Indication: PRODUCT USED FOR UNKNOWN INDICATION
     Dosage: 70 MILLIGRAM, EVERY WEEK, 1 X PER WEEK SINCE 3 YEARS
     Route: 065
     Dates: start: 2016
  2. THIAMINE. [Concomitant]
     Active Substance: THIAMINE
     Indication: PRODUCT USED FOR UNKNOWN INDICATION
     Dosage: 50 MILLIGRAM, TWO TIMES A DAY, SINCE 2013
     Route: 065
     Dates: start: 2013
  3. MOVICOLON [Suspect]
     Active Substance: POLYETHYLENE GLYCOL 3350\POTASSIUM CHLORIDE\SODIUM BICARBONATE\SODIUM CHLORIDE
     Indication: PRODUCT USED FOR UNKNOWN INDICATION
     Dosage: 25 MILLILITER, ONCE A DAY
     Route: 065
     Dates: start: 20180606, end: 20180618
  4. CETRIMIDE [Concomitant]
     Active Substance: CETRIMIDE
     Indication: PRODUCT USED FOR UNKNOWN INDICATION
     Dosage: 1 DOSAGE FORM, EVERY OTHER DAY, 3 X PER WEEK
     Route: 065
  5. DIAZEPAM. [Concomitant]
     Active Substance: DIAZEPAM
     Indication: PRODUCT USED FOR UNKNOWN INDICATION
     Dosage: 1 DOSAGE FORM, ONCE A DAY, 1 D (RUN DOWN, USED PREVIOUSLY 2 D 2 MG FROM 2013)
     Route: 065
     Dates: start: 2013
  6. CLOZAPINE 100 MG TABLET [Suspect]
     Active Substance: CLOZAPINE
     Indication: DELUSION
     Dosage: 1 DOSAGE FORM, 2 D 1 AND 1 D 0.5 TABLET TOTAL 250MG PER DAY. (SLOWLY BUILT UP TO THIS DOSAGE)
     Route: 048
     Dates: start: 20161228, end: 20181102
  7. VIT B COMPLEX [Concomitant]
     Indication: PRODUCT USED FOR UNKNOWN INDICATION
     Dosage: 1 DOSAGE FORM, ONCE A DAY, SINCE 2015
     Route: 065
     Dates: start: 2015
  8. DESMOPRESSIN [Concomitant]
     Active Substance: DESMOPRESSIN
     Indication: PRODUCT USED FOR UNKNOWN INDICATION
     Dosage: 1 DOSAGE FORM, ONCE A DAY, FROM 2015
     Route: 065
     Dates: start: 2015
  9. CLOZAPINE 100 MG TABLET [Suspect]
     Active Substance: CLOZAPINE
     Indication: OBSESSIVE-COMPULSIVE DISORDER
  10. COLECALCIFEROL [Concomitant]
     Active Substance: CHOLECALCIFEROL
     Indication: PRODUCT USED FOR UNKNOWN INDICATION
     Dosage: 25000 INTERNATIONAL UNIT, MONTHLY
     Route: 048

REACTIONS (3)
  - Ileus paralytic [Recovered/Resolved with Sequelae]
  - Impaired gastric emptying [Recovered/Resolved with Sequelae]
  - Vomiting [Recovered/Resolved with Sequelae]

NARRATIVE: CASE EVENT DATE: 20180616
